FAERS Safety Report 18215721 (Version 1)
Quarter: 2020Q3

REPORT INFORMATION
  Report Type: Report from Study
  Country: CA (occurrence: CA)
  Receive Date: 20200831
  Receipt Date: 20200831
  Transmission Date: 20201103
  Serious: Yes (Other)
  Sender: FDA-Public Use
  Company Number: CA-ACCORD-198250

PATIENT
  Sex: Male

DRUGS (9)
  1. SORIATANE [Concomitant]
     Active Substance: ACITRETIN
  2. METHOTREXATE. [Suspect]
     Active Substance: METHOTREXATE
     Indication: PRODUCT USED FOR UNKNOWN INDICATION
  3. DOVONEX [Concomitant]
     Active Substance: CALCIPOTRIENE
  4. ACITRETIN. [Concomitant]
     Active Substance: ACITRETIN
  5. PROTOPIC [Concomitant]
     Active Substance: TACROLIMUS
     Dosage: DOSAGE FORM: OINTMENT TOPICAL
     Route: 061
  6. BETAMETHASONE DIPROPIONATE\SALICYLIC ACID [Concomitant]
     Active Substance: BETAMETHASONE DIPROPIONATE\SALICYLIC ACID
     Route: 005
  7. OTEZLA [Concomitant]
     Active Substance: APREMILAST
  8. CICLOSPORIN [Suspect]
     Active Substance: CYCLOSPORINE
     Indication: PRODUCT USED FOR UNKNOWN INDICATION
  9. METHOTREXATE. [Suspect]
     Active Substance: METHOTREXATE
     Indication: PRODUCT USED FOR UNKNOWN INDICATION

REACTIONS (5)
  - Drug ineffective [Unknown]
  - Psoriatic arthropathy [Unknown]
  - Neoplasm malignant [Unknown]
  - Skin plaque [Unknown]
  - Diarrhoea [Unknown]
